FAERS Safety Report 6262340-3 (Version None)
Quarter: 2009Q3

REPORT INFORMATION
  Report Type: 
  Country: None (occurrence: None)
  Receive Date: 20090709
  Receipt Date: 20090629
  Transmission Date: 20100115
  Serious: Yes (Other)
  Sender: FDA-Public Use
  Company Number: PHHY2009IL26672

PATIENT

DRUGS (5)
  1. PROLEUKIN [Suspect]
     Indication: METASTATIC MALIGNANT MELANOMA
     Dosage: 720000 IU/KG EVERY 8 HOURS-IN TOTAL 6 DOSES
  2. G-CSF [Concomitant]
     Dosage: 10 UG/KG/DAY
  3. FLUCONAZOLE [Concomitant]
  4. ACYCLOVIR [Concomitant]
  5. SULFAMETHOXAZOLE [Concomitant]

REACTIONS (1)
  - CHOLESTASIS [None]
